FAERS Safety Report 25178256 (Version 2)
Quarter: 2025Q2

REPORT INFORMATION
  Report Type: Spontaneous
  Country: JP (occurrence: JP)
  Receive Date: 20250409
  Receipt Date: 20250425
  Transmission Date: 20250716
  Serious: Yes (Death, Other)
  Sender: DAIICHI
  Company Number: JP-DSJP-DS-2025-133297-JP

PATIENT
  Age: 9 Decade
  Sex: Male

DRUGS (3)
  1. EDOXABAN TOSYLATE [Suspect]
     Active Substance: EDOXABAN TOSYLATE
     Indication: Atrial tachycardia
     Route: 065
  2. PRASUGREL HYDROCHLORIDE [Suspect]
     Active Substance: PRASUGREL HYDROCHLORIDE
     Indication: Acute myocardial infarction
     Route: 065
  3. ASPIRIN [Concomitant]
     Active Substance: ASPIRIN
     Indication: Atrial tachycardia
     Route: 065

REACTIONS (4)
  - Death [Fatal]
  - Shock haemorrhagic [Recovering/Resolving]
  - Haematoma [Unknown]
  - Ilium fracture [Unknown]
